FAERS Safety Report 10037342 (Version 1)
Quarter: 2014Q1

REPORT INFORMATION
  Report Type: Spontaneous
  Country: US (occurrence: US)
  Receive Date: 20140326
  Receipt Date: 20140326
  Transmission Date: 20141002
  Serious: Yes (Other)
  Sender: FDA-Public Use
  Company Number: US-AMGEN-USASP2014020800

PATIENT
  Age: 39 Year
  Sex: Female

DRUGS (1)
  1. ENBREL [Suspect]
     Indication: ECZEMA
     Dosage: 50 MG, QWK
     Route: 065
     Dates: start: 2007, end: 201312

REACTIONS (2)
  - Eczema [Not Recovered/Not Resolved]
  - Somnolence [Not Recovered/Not Resolved]
